FAERS Safety Report 9396125 (Version 2)
Quarter: 2013Q3

REPORT INFORMATION
  Report Type: Report from Study
  Country: US (occurrence: US)
  Receive Date: 20130711
  Receipt Date: 20130822
  Transmission Date: 20140515
  Serious: Yes (Other)
  Sender: FDA-Public Use
  Company Number: US-ELI_LILLY_AND_COMPANY-US201307002647

PATIENT
  Sex: Female
  Weight: 49.89 kg

DRUGS (4)
  1. TERIPARATIDE [Suspect]
     Indication: OSTEOPOROSIS
     Dosage: UNK, QD
  2. CRESTOR [Concomitant]
  3. IBUPROFEN [Concomitant]
  4. VITAMIN D                          /00107901/ [Concomitant]

REACTIONS (1)
  - Palpitations [Recovered/Resolved]
